FAERS Safety Report 9513638 (Version 3)
Quarter: 2013Q4

REPORT INFORMATION
  Report Type: Spontaneous
  Country: FR (occurrence: FR)
  Receive Date: 20130910
  Receipt Date: 20131002
  Transmission Date: 20140711
  Serious: Yes (Hospitalization)
  Sender: FDA-Public Use
  Company Number: FR-GLAXOSMITHKLINE-B0920773A

PATIENT
  Age: 80 Year
  Sex: Female

DRUGS (16)
  1. VENTOLINE (SALBUTAMOL) [Suspect]
     Indication: ACUTE SINUSITIS
     Route: 055
     Dates: start: 20130508, end: 20130516
  2. AMOXICILLINE [Suspect]
     Indication: BRONCHITIS
     Route: 048
     Dates: start: 20130409, end: 20130416
  3. ORELOX [Suspect]
     Indication: ACUTE SINUSITIS
     Route: 048
     Dates: start: 20130508, end: 20130516
  4. BACTRIM FORTE (SULFAMETHOXAZOLE + TRIMETHOPRIME) [Suspect]
     Indication: CYSTITIS
     Dosage: 2TAB PER DAY
     Route: 048
     Dates: start: 20130511, end: 20130521
  5. BRONCHOKOD [Suspect]
     Indication: BRONCHITIS
     Route: 048
     Dates: start: 20130409, end: 20130416
  6. SERESTA [Concomitant]
     Dosage: 20MG PER DAY
     Route: 048
  7. DAFLON [Concomitant]
     Dosage: 500MG TWICE PER DAY
     Route: 048
  8. BISOPROLOL HEMIFUMARATE [Concomitant]
     Dosage: 5MG PER DAY
     Route: 048
  9. LEVOTHYROX [Concomitant]
     Dosage: 75MCG PER DAY
     Route: 048
  10. PREVISCAN (FLUINDIONE) [Concomitant]
     Dosage: 10MG PER DAY
     Route: 048
  11. KALEORID LP [Concomitant]
     Dosage: 1000MG THREE TIMES PER DAY
     Route: 048
  12. HEMIGOXINE NATIVELLE [Concomitant]
     Dosage: .125MG PER DAY
     Route: 048
  13. OMEPRAZOLE [Concomitant]
     Dosage: 10MG PER DAY
     Route: 048
  14. OROCAL D3 [Concomitant]
     Dosage: 1TAB PER DAY
     Route: 048
  15. BURINEX [Concomitant]
     Dosage: 5MG PER DAY
     Route: 048
  16. DOLIPRANE [Concomitant]
     Indication: PAIN

REACTIONS (8)
  - Acute generalised exanthematous pustulosis [Recovering/Resolving]
  - Rash maculo-papular [Recovering/Resolving]
  - Eczema [Recovering/Resolving]
  - Rash pustular [Recovering/Resolving]
  - Erythema [Recovering/Resolving]
  - Pruritus [Recovering/Resolving]
  - Neutrophilia [Unknown]
  - Oral candidiasis [Unknown]
